FAERS Safety Report 9772384 (Version 1)
Quarter: 2013Q4

REPORT INFORMATION
  Report Type: Spontaneous
  Country: US (occurrence: None)
  Receive Date: 20131217
  Receipt Date: 20131217
  Transmission Date: 20140711
  Serious: Yes (Life-Threatening)
  Sender: FDA-Public Use
  Company Number: 00360

PATIENT
  Age: 25 Year
  Sex: Female

DRUGS (2)
  1. ALCOHOL [Suspect]
     Indication: SKIN PAPILLOMA
     Dosage: 1 DROP IN 6 OZS WATER
  2. ALCOHOL [Suspect]
     Indication: URINARY TRACT DISORDER
     Dosage: 1 DROP IN 6 OZS WATER

REACTIONS (4)
  - Hypersensitivity [None]
  - Dyspnoea [None]
  - Throat tightness [None]
  - Glossitis [None]
